FAERS Safety Report 7089414-1 (Version None)
Quarter: 2010Q4

REPORT INFORMATION
  Report Type: 
  Country: None (occurrence: None)
  Receive Date: 20101108
  Receipt Date: 20101029
  Transmission Date: 20110411
  Serious: Yes (Death, Other)
  Sender: FDA-Public Use
  Company Number: IE-BAXTER-2010BH006644

PATIENT
  Age: 73 Year
  Sex: Female

DRUGS (8)
  1. SODIUM CHLORIDE 0.9% IN PLASTIC CONTAINER [Suspect]
     Indication: RHEUMATOID ARTHRITIS
     Route: 042
     Dates: start: 20091029, end: 20091029
  2. SODIUM CHLORIDE 0.9% IN PLASTIC CONTAINER [Suspect]
     Route: 042
     Dates: start: 20091101, end: 20091101
  3. RITUXIMAB [Suspect]
     Indication: RHEUMATOID ARTHRITIS
     Route: 042
     Dates: start: 20091029, end: 20091029
  4. RITUXIMAB [Suspect]
     Route: 042
     Dates: start: 20091101, end: 20091101
  5. METHYLPREDNISOLONE [Concomitant]
     Indication: PREMEDICATION
     Route: 042
     Dates: start: 20091029, end: 20091029
  6. PIRITON [Concomitant]
     Indication: PREMEDICATION
     Route: 042
     Dates: start: 20091029, end: 20091029
  7. PARACETAMOL [Concomitant]
     Indication: PREMEDICATION
     Route: 048
     Dates: start: 20091029, end: 20091029
  8. CALCICHEW [Concomitant]
     Indication: PRODUCT USED FOR UNKNOWN INDICATION
     Route: 048

REACTIONS (2)
  - CEREBROVASCULAR ACCIDENT [None]
  - PROGRESSIVE MULTIFOCAL LEUKOENCEPHALOPATHY [None]
